FAERS Safety Report 5069274-0 (Version None)
Quarter: 2006Q3

REPORT INFORMATION
  Report Type: 
  Country: None (occurrence: None)
  Receive Date: 20060803
  Receipt Date: 20060719
  Transmission Date: 20061208
  Serious: Yes (Hospitalization)
  Sender: FDA-Public Use
  Company Number: US-BAYER-200613037BCC

PATIENT
  Age: 87 Year
  Sex: Female
  Weight: 57 kg

DRUGS (3)
  1. ALKA-SELTZER HEARTBURN RELIEF [Suspect]
     Indication: DYSPEPSIA
     Dosage: TOTAL DAILY DOSE: 2000 MG  UNIT DOSE: 1000 MG
     Route: 048
     Dates: start: 20060704, end: 20060706
  2. HEART MEDICATION [Concomitant]
  3. BLOOD PRESSURE MEDICATION [Concomitant]

REACTIONS (3)
  - DYSPEPSIA [None]
  - FATIGUE [None]
  - MYOCARDIAL INFARCTION [None]
